FAERS Safety Report 20386336 (Version 1)
Quarter: 2022Q1

REPORT INFORMATION
  Report Type: Spontaneous
  Country: JP (occurrence: JP)
  Receive Date: 20220127
  Receipt Date: 20220127
  Transmission Date: 20220424
  Serious: Yes (Other)
  Sender: FDA-Public Use
  Company Number: JP-ALLERGAN-2202751JP

PATIENT

DRUGS (1)
  1. BOTOX [Suspect]
     Active Substance: ONABOTULINUMTOXINA
     Indication: Muscle hypertrophy
     Dosage: UNK UNK, SINGLE
     Route: 030
     Dates: start: 2020, end: 2020

REACTIONS (2)
  - Application site mass [Unknown]
  - Off label use [Unknown]

NARRATIVE: CASE EVENT DATE: 20200101
